FAERS Safety Report 7376693-6 (Version None)
Quarter: 2011Q1

REPORT INFORMATION
  Report Type: 
  Country: None (occurrence: None)
  Receive Date: 20110325
  Receipt Date: 20110322
  Transmission Date: 20110831
  Serious: Yes (Hospitalization, Other)
  Sender: FDA-Public Use
  Company Number: FR-PFIZER INC-2011062566

PATIENT
  Age: 90 Year
  Sex: Male

DRUGS (10)
  1. TAREG [Concomitant]
     Dosage: 160 MG, UNK
  2. LYRICA [Suspect]
     Indication: HERPES ZOSTER
     Dosage: 50 MG, 2X/DAY
     Dates: start: 20110301
  3. CARDENSIEL [Concomitant]
     Dosage: 2.5 MG, 1X/DAY
  4. FUROSEMIDE [Concomitant]
     Dosage: 20 MG, 1X/DAY
  5. CITALOPRAM [Concomitant]
     Dosage: ^20^, UNK
  6. EQUANIL [Concomitant]
     Dosage: 250 MG, 1X/DAY IN THE EVENING
  7. PREVISCAN [Concomitant]
     Dosage: 0.75 DF, UNK
  8. TAHOR [Concomitant]
     Dosage: 10 MG, 1X/DAY
  9. PREVISCAN [Concomitant]
     Dosage: 0.5 DF, UNK
  10. ACETAMINOPHEN [Concomitant]
     Dosage: 1000 MG, 3X/DAY

REACTIONS (6)
  - FALL [None]
  - APHASIA [None]
  - SPEECH DISORDER [None]
  - MULTIPLE FRACTURES [None]
  - NERVOUS SYSTEM DISORDER [None]
  - RIB FRACTURE [None]
